FAERS Safety Report 23201550 (Version 1)
Quarter: 2023Q4

REPORT INFORMATION
  Report Type: Report from Study
  Country: FR (occurrence: FR)
  Receive Date: 20231118
  Receipt Date: 20231118
  Transmission Date: 20240110
  Serious: Yes (Hospitalization)
  Sender: FDA-Public Use
  Company Number: FR-AMGEN-FRACT2023028568

PATIENT
  Age: 73 Year
  Sex: Male
  Weight: 79 kg

DRUGS (11)
  1. PANITUMUMAB [Suspect]
     Active Substance: PANITUMUMAB
     Indication: Adenocarcinoma of colon
     Dosage: 480 MILLIGRAM/ CUMULATIVE DOSE: 3880 MG
     Route: 040
     Dates: start: 20221006
  2. OXALIPLATIN [Suspect]
     Active Substance: OXALIPLATIN
     Indication: Adenocarcinoma of colon
     Dosage: 130 MILLIGRAM/ CUMULATIVE DOSE: 1212.50 MG
     Route: 040
     Dates: start: 20221006
  3. LEVOLEUCOVORIN CALCIUM [Suspect]
     Active Substance: LEVOLEUCOVORIN CALCIUM
     Indication: Adenocarcinoma of colon
     Dosage: 385 MILLIGRAM/ CUMULATIVE DOSE: 3090 MG
     Route: 040
     Dates: start: 20221006
  4. FLUOROURACIL [Suspect]
     Active Substance: FLUOROURACIL
     Indication: Adenocarcinoma of colon
     Dosage: 775 MILLIGRAM / CUMULATIVE DOSE: 6200 MG (BOLUS)
     Route: 040
     Dates: start: 20221006
  5. FLUOROURACIL [Suspect]
     Active Substance: FLUOROURACIL
     Dosage: 4600 MILLIGRAM/ CUMULATIVE DOSE: 37000 MG (CONTINUOUS)
     Route: 040
     Dates: start: 20221006
  6. SITAGLIPTIN [Concomitant]
     Active Substance: SITAGLIPTIN
     Dosage: UNK
  7. METFORMIN [Concomitant]
     Active Substance: METFORMIN HYDROCHLORIDE
  8. CANDESARTAN [Concomitant]
     Active Substance: CANDESARTAN
  9. DOXYCYCLINE [Concomitant]
     Active Substance: DOXYCYCLINE
     Dosage: 100 MILLIGRAM, 2 TABLET
  10. BISOPROLOL [Concomitant]
     Active Substance: BISOPROLOL\BISOPROLOL FUMARATE
     Dosage: UNK
     Dates: start: 20230131
  11. SODIUM CHLORIDE [Concomitant]
     Active Substance: SODIUM CHLORIDE
     Dosage: UNK
     Dates: start: 20230131

REACTIONS (2)
  - Acute kidney injury [Recovered/Resolved]
  - Diarrhoea [Recovered/Resolved]

NARRATIVE: CASE EVENT DATE: 20230120
